FAERS Safety Report 8176411-8 (Version None)
Quarter: 2012Q1

REPORT INFORMATION
  Report Type: 
  Country: None (occurrence: None)
  Receive Date: 20120301
  Receipt Date: 20120224
  Transmission Date: 20120608
  Serious: Yes (Other)
  Sender: FDA-Public Use
  Company Number: FR-ASTELLAS-2012EU001495

PATIENT
  Sex: Female

DRUGS (4)
  1. VESICARE [Suspect]
     Indication: HYPERTONIC BLADDER
     Dosage: 1 DF, UID/QD
     Route: 048
     Dates: start: 20120201, end: 20120220
  2. TERCIAN [Concomitant]
     Indication: PHOBIA
     Dosage: UNK
     Route: 048
  3. PRAZEPAM [Concomitant]
     Indication: PHOBIA
     Dosage: UNK
     Route: 048
  4. ESCITALOPRAM OXALATE [Concomitant]
     Indication: PHOBIA
     Dosage: UNK
     Route: 048

REACTIONS (4)
  - HALLUCINATION, VISUAL [None]
  - MUSCULAR WEAKNESS [None]
  - CONFUSIONAL STATE [None]
  - FALL [None]
